FAERS Safety Report 7910563-7 (Version None)
Quarter: 2011Q4

REPORT INFORMATION
  Report Type: 
  Country: None (occurrence: None)
  Receive Date: 20111111
  Receipt Date: 20111104
  Transmission Date: 20120403
  Serious: Yes (Other)
  Sender: FDA-Public Use
  Company Number: PHHY2011DE82886

PATIENT
  Sex: Female
  Weight: 42 kg

DRUGS (7)
  1. QUILONUM RET [Concomitant]
     Dosage: 2 DF, QD
     Route: 048
  2. CLOZAPINE [Suspect]
     Indication: SCHIZOPHRENIA
  3. LORAZEPAM [Concomitant]
     Dosage: 0.5 MG
     Route: 048
  4. LEVOTHYROXINE SODIUM [Concomitant]
  5. CLOZAPINE [Suspect]
     Indication: PSYCHOTIC DISORDER
     Dosage: 450 MG, DAILY SINCE ABOUT 20 YEARS
     Route: 048
  6. PROMETHAZINE [Concomitant]
     Dosage: 25 MG
  7. BETA BLOCKING AGENTS [Concomitant]

REACTIONS (1)
  - BREAST CANCER [None]
